FAERS Safety Report 24991149 (Version 1)
Quarter: 2025Q1

REPORT INFORMATION
  Report Type: Spontaneous
  Country: US (occurrence: US)
  Receive Date: 20250220
  Receipt Date: 20250220
  Transmission Date: 20250408
  Serious: No
  Sender: PFIZER
  Company Number: US-PFIZER INC-PV202500020115

PATIENT
  Age: 43 Year
  Sex: Male

DRUGS (1)
  1. LORBRENA [Suspect]
     Active Substance: LORLATINIB
     Dates: start: 202412

REACTIONS (3)
  - Emotional disorder [Unknown]
  - Blood cholesterol increased [Unknown]
  - Mood altered [Unknown]
